FAERS Safety Report 6904660-2 (Version None)
Quarter: 2010Q3

REPORT INFORMATION
  Report Type: 
  Country: None (occurrence: None)
  Receive Date: 20100804
  Receipt Date: 20090630
  Transmission Date: 20110219
  Serious: No
  Sender: FDA-Public Use
  Company Number: US-PFIZER INC-2009214327

PATIENT
  Sex: Female
  Weight: 67.131 kg

DRUGS (1)
  1. LYRICA [Suspect]
     Indication: FIBROMYALGIA
     Dosage: 75 MG, 2X/DAY
     Dates: start: 20090101, end: 20090101

REACTIONS (4)
  - HYPERSENSITIVITY [None]
  - INSOMNIA [None]
  - PRURITUS [None]
  - RASH MACULAR [None]
